FAERS Safety Report 20708615 (Version 4)
Quarter: 2023Q4

REPORT INFORMATION
  Report Type: Other
  Country: US (occurrence: None)
  Receive Date: 20220414
  Receipt Date: 20231220
  Transmission Date: 20240109
  Serious: Yes (Other)
  Sender: FDA-Public Use
  Company Number: US-ROCHE-2791082

PATIENT
  Age: 56 Year
  Sex: Female

DRUGS (2)
  1. OCREVUS [Suspect]
     Active Substance: OCRELIZUMAB
     Indication: Relapsing-remitting multiple sclerosis
     Dosage: (PRESCRIBED AS INFUSE 300 MG IV ON DAY 1 AND 15 DAY THEN 600 MG IV EVERY 6 MONTHS)?DATE OF TREATMENT
     Route: 042
     Dates: start: 20180817
  2. ELIQUIS [Concomitant]
     Active Substance: APIXABAN

REACTIONS (7)
  - Atrial fibrillation [Recovered/Resolved]
  - Thrombosis [Unknown]
  - Urinary tract infection [Not Recovered/Not Resolved]
  - Choking [Unknown]
  - Infection [Unknown]
  - COVID-19 [Recovered/Resolved]
  - Sinusitis [Recovered/Resolved]

NARRATIVE: CASE EVENT DATE: 20210212
